FAERS Safety Report 8868995 (Version 3)
Quarter: 2013Q1

REPORT INFORMATION
  Report Type: Spontaneous
  Country: US (occurrence: US)
  Receive Date: 20121027
  Receipt Date: 20130128
  Transmission Date: 20140127
  Serious: Yes (Disabling, Other)
  Sender: FDA-Public Use
  Company Number: US-009507513-1210USA006577

PATIENT
  Sex: Female

DRUGS (4)
  1. FOSAMAX [Suspect]
     Indication: OSTEOPOROSIS
     Dosage: UNK
     Dates: start: 20020716, end: 200911
  2. FOSAMAX [Suspect]
     Indication: OSTEOPENIA
  3. FOSAMAX [Suspect]
     Indication: OSTEOPOROSIS
     Dosage: UNK
     Dates: start: 2008, end: 2010
  4. FOSAMAX [Suspect]
     Indication: OSTEOPENIA

REACTIONS (5)
  - Femur fracture [Unknown]
  - Bone disorder [Unknown]
  - Stress fracture [Unknown]
  - Femur fracture [Unknown]
  - Low turnover osteopathy [Unknown]
